FAERS Safety Report 6198574-6 (Version None)
Quarter: 2009Q2

REPORT INFORMATION
  Report Type: 
  Country: None (occurrence: None)
  Receive Date: 20090518
  Receipt Date: 20090430
  Transmission Date: 20091009
  Serious: Yes (Hospitalization, Disabling)
  Sender: FDA-Public Use
  Company Number: 2007S1002590

PATIENT
  Sex: Female
  Weight: 53.5244 kg

DRUGS (8)
  1. PHOSPHOSODA FLAVOR NOT SPECIFIED [Suspect]
     Indication: COLONOSCOPY
     Dosage: 90 ML; TOTAL; PO
     Route: 048
     Dates: start: 20060719, end: 20060720
  2. PREMARIN [Concomitant]
  3. CLONIDINE [Concomitant]
  4. TRANXENE [Concomitant]
  5. LEXAPRO [Concomitant]
  6. MOTRIN [Concomitant]
  7. NAPROXEN [Concomitant]
  8. TARKA [Concomitant]

REACTIONS (12)
  - ANAEMIA OF CHRONIC DISEASE [None]
  - GAIT DISTURBANCE [None]
  - JOINT SWELLING [None]
  - KIDNEY FIBROSIS [None]
  - NAUSEA [None]
  - NEPHROCALCINOSIS [None]
  - NEPHROLITHIASIS [None]
  - RENAL FAILURE ACUTE [None]
  - RENAL TUBULAR NECROSIS [None]
  - SENSATION OF HEAVINESS [None]
  - TUBULOINTERSTITIAL NEPHRITIS [None]
  - VOMITING [None]
